FAERS Safety Report 5952268-8 (Version None)
Quarter: 2008Q4

REPORT INFORMATION
  Report Type: 
  Country: None (occurrence: None)
  Receive Date: 20081113
  Receipt Date: 20081106
  Transmission Date: 20090506
  Serious: Yes (Death, Hospitalization)
  Sender: FDA-Public Use
  Company Number: US-GILEAD-2008-0018668

PATIENT
  Sex: Male
  Weight: 100.33 kg

DRUGS (1)
  1. LETAIRIS [Suspect]
     Indication: PULMONARY ARTERIAL HYPERTENSION
     Route: 048
     Dates: start: 20080801, end: 20081001

REACTIONS (2)
  - ACUTE RESPIRATORY FAILURE [None]
  - PULMONARY HYPERTENSION [None]
